FAERS Safety Report 12037401 (Version 7)
Quarter: 2018Q2

REPORT INFORMATION
  Report Type: Report from Study
  Country: CA (occurrence: CA)
  Receive Date: 20160208
  Receipt Date: 20180605
  Transmission Date: 20180711
  Serious: Yes (Other)
  Sender: FDA-Public Use
  Company Number: CA-ROCHE-ITM201502IM010842

PATIENT
  Age: 81 Year
  Sex: Female
  Weight: 80.9 kg

DRUGS (10)
  1. ESBRIET [Suspect]
     Active Substance: PIRFENIDONE
     Route: 048
     Dates: start: 20150630
  2. ESBRIET [Suspect]
     Active Substance: PIRFENIDONE
     Dosage: 2-3-3
     Route: 048
     Dates: start: 20150601
  3. ESBRIET [Suspect]
     Active Substance: PIRFENIDONE
     Indication: IDIOPATHIC PULMONARY FIBROSIS
     Route: 048
     Dates: start: 20150209
  4. ESBRIET [Suspect]
     Active Substance: PIRFENIDONE
     Route: 048
     Dates: start: 20150216
  5. ESBRIET [Suspect]
     Active Substance: PIRFENIDONE
     Route: 048
     Dates: start: 20150223
  6. ESBRIET [Suspect]
     Active Substance: PIRFENIDONE
     Route: 048
     Dates: start: 20150615
  7. ESBRIET [Suspect]
     Active Substance: PIRFENIDONE
     Route: 048
     Dates: start: 20150312
  8. ESBRIET [Suspect]
     Active Substance: PIRFENIDONE
     Dosage: 2-3-2
     Route: 048
     Dates: start: 20150518
  9. PGX [Concomitant]
  10. NAPROSYN [Concomitant]
     Active Substance: NAPROXEN
     Indication: ARTHRITIS
     Dosage: AS REQUIRED
     Route: 065

REACTIONS (16)
  - Cough [Recovered/Resolved]
  - Dyspnoea [Unknown]
  - Lung infection [Recovering/Resolving]
  - Hypothyroidism [Unknown]
  - Sleep disorder [Not Recovered/Not Resolved]
  - Dyspepsia [Not Recovered/Not Resolved]
  - Arthralgia [Unknown]
  - Myalgia [Unknown]
  - Nausea [Unknown]
  - Fatigue [Not Recovered/Not Resolved]
  - Pruritus [Recovering/Resolving]
  - Diarrhoea [Unknown]
  - Pulmonary function test decreased [Unknown]
  - Feeling abnormal [Unknown]
  - Asthenia [Unknown]
  - Weight decreased [Unknown]

NARRATIVE: CASE EVENT DATE: 20150615
